FAERS Safety Report 8175200-8 (Version None)
Quarter: 2012Q1

REPORT INFORMATION
  Report Type: 
  Country: None (occurrence: None)
  Receive Date: 20120229
  Receipt Date: 20120222
  Transmission Date: 20120608
  Serious: Yes (Other)
  Sender: FDA-Public Use
  Company Number: BR-PFIZER INC-2012047076

PATIENT
  Age: 64 Year
  Sex: Female

DRUGS (11)
  1. METOPROLOL TARTRATE [Concomitant]
     Indication: DIABETES MELLITUS
     Dosage: UNK
     Dates: start: 20050101
  2. CLONIDINE HYDROCHLORIDE [Concomitant]
     Indication: HYPERTENSION
     Dosage: UNK
     Dates: start: 20050101
  3. SIMVASTATIN [Concomitant]
     Indication: BLOOD CHOLESTEROL
     Dosage: UNK
     Dates: start: 20050101
  4. XALATAN [Suspect]
     Dosage: 3 UG (TWO DROPS), 1X/DAY
     Route: 047
     Dates: start: 20110222
  5. GLIBENCLAMIDE [Concomitant]
     Indication: DIABETES MELLITUS
     Dosage: UNK
     Dates: start: 20050101
  6. CHLOROTHIAZIDE [Concomitant]
     Indication: HYPERTENSION
     Dosage: UNK
     Dates: start: 20050101
  7. LOSARTAN [Concomitant]
     Indication: HYPERTENSION
     Dosage: UNK
     Dates: start: 20050101
  8. CILOSTAZOL [Concomitant]
     Indication: DIABETES MELLITUS
     Dosage: UNK
     Dates: start: 20050101
  9. COSOPT [Concomitant]
     Dosage: UNK
     Dates: start: 20110101
  10. AMLODIPINE BESILATE [Concomitant]
     Indication: HYPERTENSION
     Dosage: UNK
     Dates: start: 20050101
  11. METFORMIN [Concomitant]
     Indication: BLOOD CHOLESTEROL
     Dosage: UNK
     Dates: start: 20050101

REACTIONS (1)
  - BLINDNESS UNILATERAL [None]
